FAERS Safety Report 10146611 (Version 1)
Quarter: 2014Q2

REPORT INFORMATION
  Report Type: Spontaneous
  Country: SE (occurrence: SE)
  Receive Date: 20140501
  Receipt Date: 20140501
  Transmission Date: 20141212
  Serious: Yes (Hospitalization)
  Sender: FDA-Public Use
  Company Number: SE-GLAXOSMITHKLINE-B0989037A

PATIENT
  Age: 60 Year
  Sex: Female
  Weight: 75 kg

DRUGS (4)
  1. ALLI [Suspect]
     Indication: WEIGHT CONTROL
     Dosage: 60MG TWICE PER DAY
     Route: 065
     Dates: start: 20140109, end: 20140111
  2. LEVAXIN [Concomitant]
     Indication: HYPOTHYROIDISM
     Route: 065
  3. ALPHAGAN [Concomitant]
     Indication: GLAUCOMA
     Route: 065
  4. TRAVATAN [Concomitant]
     Indication: GLAUCOMA
     Route: 065

REACTIONS (2)
  - Swelling face [Recovered/Resolved]
  - Eyelid oedema [Recovered/Resolved]
